FAERS Safety Report 9690261 (Version 1)
Quarter: 2013Q4

REPORT INFORMATION
  Report Type: Spontaneous
  Country: US (occurrence: None)
  Receive Date: 20131114
  Receipt Date: 20131114
  Transmission Date: 20140711
  Serious: Yes (Other)
  Sender: FDA-Public Use
  Company Number: None

PATIENT
  Age: 61 Day
  Sex: Female
  Weight: 58.06 kg

DRUGS (3)
  1. ESCITALOPRAM [Suspect]
     Indication: ANXIETY
  2. ESCITALOPRAM [Suspect]
     Indication: DEPRESSION
  3. ESCITALOPRAM [Suspect]

REACTIONS (6)
  - Drug withdrawal syndrome [None]
  - Anxiety [None]
  - Panic disorder [None]
  - Muscle twitching [None]
  - Hyperhidrosis [None]
  - Product substitution issue [None]
